FAERS Safety Report 10925143 (Version 1)
Quarter: 2015Q1

REPORT INFORMATION
  Report Type: Spontaneous
  Country: US (occurrence: None)
  Receive Date: 20150203
  Receipt Date: 20150203
  Transmission Date: 20150721
  Serious: Yes (Hospitalization)
  Sender: FDA-Public Use
  Company Number: TPA2011A06045

PATIENT
  Age: 62 Year
  Sex: Female
  Weight: 64.41 kg

DRUGS (3)
  1. DEXILANT [Suspect]
     Active Substance: DEXLANSOPRAZOLE
     Indication: GASTROOESOPHAGEAL REFLUX DISEASE
     Route: 048
     Dates: start: 20110917, end: 20110918
  2. DEXILANT [Suspect]
     Active Substance: DEXLANSOPRAZOLE
     Indication: GASTRITIS
     Route: 048
     Dates: start: 20110917, end: 20110918
  3. BYSTOLIC [Concomitant]
     Active Substance: NEBIVOLOL HYDROCHLORIDE

REACTIONS (7)
  - Palpitations [None]
  - Oedema mouth [None]
  - Eye swelling [None]
  - Cough [None]
  - Lip swelling [None]
  - Swelling face [None]
  - Paraesthesia oral [None]

NARRATIVE: CASE EVENT DATE: 20110917
